FAERS Safety Report 16447007 (Version 2)
Quarter: 2019Q3

REPORT INFORMATION
  Report Type: Spontaneous
  Country: MK (occurrence: MK)
  Receive Date: 20190618
  Receipt Date: 20190718
  Transmission Date: 20191004
  Serious: Yes (Other)
  Sender: FDA-Public Use
  Company Number: MK-GE HEALTHCARE LIFE SCIENCES-2019CSU003083

PATIENT

DRUGS (3)
  1. VISIPAQUE [Suspect]
     Active Substance: IODIXANOL
     Indication: UROGRAM
  2. VISIPAQUE [Suspect]
     Active Substance: IODIXANOL
     Indication: ULTRASOUND KIDNEY
     Dosage: 40 ML, SINGLE
     Route: 042
     Dates: start: 20190606, end: 20190606
  3. VISIPAQUE [Suspect]
     Active Substance: IODIXANOL
     Indication: PRODUCT USED FOR UNKNOWN INDICATION

REACTIONS (4)
  - Dyspnoea [Recovered/Resolved]
  - Hypersensitivity [Recovered/Resolved]
  - Musculoskeletal stiffness [Recovered/Resolved]
  - Urticaria [Recovered/Resolved]

NARRATIVE: CASE EVENT DATE: 20190606
